FAERS Safety Report 24542988 (Version 1)
Quarter: 2024Q4

REPORT INFORMATION
  Report Type: Spontaneous
  Country: CH (occurrence: CH)
  Receive Date: 20241024
  Receipt Date: 20241024
  Transmission Date: 20250114
  Serious: Yes (Hospitalization, Other)
  Sender: TAKEDA
  Company Number: None

PATIENT
  Age: 69 Year
  Sex: Female

DRUGS (4)
  1. BRINTELLIX [Interacting]
     Active Substance: VORTIOXETINE HYDROBROMIDE
     Indication: Depression
     Dosage: 10 MILLIGRAM, QD
     Route: 048
  2. ENOXAPARIN SODIUM [Interacting]
     Active Substance: ENOXAPARIN SODIUM
     Indication: Pulmonary embolism
     Dosage: UNK
     Route: 065
     Dates: start: 20240809, end: 20240814
  3. ENOXAPARIN SODIUM [Interacting]
     Active Substance: ENOXAPARIN SODIUM
     Dosage: 60 MILLIGRAM, Q12H
     Route: 058
     Dates: start: 20240820
  4. AMOXICILLIN\CLAVULANATE POTASSIUM [Concomitant]
     Active Substance: AMOXICILLIN\CLAVULANATE POTASSIUM
     Indication: Tooth abscess
     Dosage: 2.2 GRAM, Q8HR
     Route: 040
     Dates: start: 20240811, end: 20240820

REACTIONS (3)
  - Haemorrhage [Recovered/Resolved]
  - Blood loss anaemia [Recovering/Resolving]
  - Drug interaction [Recovered/Resolved]

NARRATIVE: CASE EVENT DATE: 20240809
